FAERS Safety Report 5160776-5 (Version None)
Quarter: 2006Q4

REPORT INFORMATION
  Report Type: 
  Country: None (occurrence: None)
  Receive Date: 20061121
  Receipt Date: 20061110
  Transmission Date: 20070319
  Serious: Yes (Other)
  Sender: FDA-Public Use
  Company Number: 2006140250

PATIENT
  Age: 16 Year
  Sex: Male

DRUGS (5)
  1. SERTRALINE [Suspect]
     Indication: DEPRESSIVE SYMPTOM
     Dosage: 25 MG
  2. LITHIUM CARBONATE [Suspect]
     Indication: MANIA
     Dosage: 600 MG
  3. DIVALPROEX (VALPROIC ACID) [Suspect]
     Indication: MANIA
     Dosage: 1000 MG
  4. BUPROPION HCL [Suspect]
     Indication: DEPRESSIVE SYMPTOM
  5. METHYLPHENIDATE HCL [Suspect]
     Indication: DISTRACTIBILITY
     Dosage: DAILY DOSES OF 5 MG AND 10 MG, LATER CHA

REACTIONS (24)
  - ABDOMINAL DISCOMFORT [None]
  - AFFECTIVE DISORDER [None]
  - ANXIETY [None]
  - APATHY [None]
  - ASTHENIA [None]
  - CONDITION AGGRAVATED [None]
  - DECREASED APPETITE [None]
  - DISTRACTIBILITY [None]
  - DISTURBANCE IN ATTENTION [None]
  - DISTURBANCE IN SOCIAL BEHAVIOUR [None]
  - DRUG INEFFECTIVE [None]
  - EDUCATIONAL PROBLEM [None]
  - EUPHORIC MOOD [None]
  - FATIGUE [None]
  - IMPULSIVE BEHAVIOUR [None]
  - INSOMNIA [None]
  - IRRITABILITY [None]
  - MAJOR DEPRESSION [None]
  - MANIA [None]
  - MOOD SWINGS [None]
  - PRESSURE OF SPEECH [None]
  - SELF INJURIOUS BEHAVIOUR [None]
  - SLEEP DISORDER [None]
  - THINKING ABNORMAL [None]
